FAERS Safety Report 20623127 (Version 1)
Quarter: 2022Q1

REPORT INFORMATION
  Report Type: Spontaneous
  Country: RO (occurrence: None)
  Receive Date: 20220322
  Receipt Date: 20220322
  Transmission Date: 20220423
  Serious: Yes (Other)
  Sender: FDA-Public Use
  Company Number: RO-ROCHE-3050954

PATIENT
  Age: 51 Year
  Sex: Male

DRUGS (1)
  1. OBINUTUZUMAB [Suspect]
     Active Substance: OBINUTUZUMAB
     Indication: Chronic lymphocytic leukaemia
     Route: 042
     Dates: start: 20211207

REACTIONS (5)
  - Nausea [Unknown]
  - Ill-defined disorder [Unknown]
  - Erythema [Unknown]
  - Anxiety [Unknown]
  - Off label use [Unknown]
